FAERS Safety Report 5037527-8 (Version None)
Quarter: 2006Q2

REPORT INFORMATION
  Report Type: 
  Country: None (occurrence: None)
  Receive Date: 20060628
  Receipt Date: 20060419
  Transmission Date: 20061013
  Serious: Yes (Life-Threatening)
  Sender: FDA-Public Use
  Company Number: IT-BRISTOL-MYERS SQUIBB COMPANY-13352430

PATIENT
  Age: 78 Year
  Sex: Female

DRUGS (4)
  1. GLUCOPHAGE [Suspect]
     Indication: DIABETES MELLITUS
     Route: 048
     Dates: start: 20041001, end: 20060301
  2. COAPROVEL TABS 300MG/12.5MG [Suspect]
     Indication: HYPERTENSION
     Route: 048
     Dates: start: 20041001, end: 20060301
  3. EUTIROX [Concomitant]
     Route: 048
  4. LACIPIL [Concomitant]
     Route: 048

REACTIONS (6)
  - ASTHENIA [None]
  - LACTIC ACIDOSIS [None]
  - OLIGURIA [None]
  - PALPITATIONS [None]
  - RENAL FAILURE ACUTE [None]
  - VOMITING [None]
